FAERS Safety Report 5669160-9 (Version None)
Quarter: 2008Q1

REPORT INFORMATION
  Report Type: 
  Country: None (occurrence: None)
  Receive Date: 20080311
  Receipt Date: 20080311
  Transmission Date: 20080703
  Serious: Yes (Other)
  Sender: FDA-Public Use
  Company Number: None

PATIENT
  Age: 62 Year
  Sex: Male
  Weight: 86.2 kg

DRUGS (2)
  1. VARENICLINE [Suspect]
     Indication: SMOKING CESSATION THERAPY
     Dosage: PER STARTER PACK
     Dates: start: 20080211, end: 20080303
  2. FLUOXETINE HCL [Concomitant]

REACTIONS (2)
  - CONDITION AGGRAVATED [None]
  - SUICIDAL IDEATION [None]
